FAERS Safety Report 9148727 (Version 1)
Quarter: 2013Q1

REPORT INFORMATION
  Report Type: Spontaneous
  Country: US (occurrence: None)
  Receive Date: 20130228
  Receipt Date: 20130228
  Transmission Date: 20140127
  Serious: No
  Sender: FDA-Public Use
  Company Number: None

PATIENT
  Age: 66 Year
  Sex: Male
  Weight: 71.67 kg

DRUGS (2)
  1. ATORVASTATIN [Suspect]
     Indication: HYPERLIPIDAEMIA
     Dosage: 40 MG  ONE DAILY ORAL
     Route: 048
     Dates: start: 20121101, end: 20130218
  2. ATORVASTATIN [Suspect]
     Indication: CORONARY ARTERY DISEASE
     Dosage: 40 MG  ONE DAILY ORAL
     Route: 048
     Dates: start: 20121101, end: 20130218

REACTIONS (4)
  - Product substitution issue [None]
  - Product quality issue [None]
  - Lipids increased [None]
  - Arthralgia [None]
